FAERS Safety Report 6396209-0 (Version None)
Quarter: 2009Q4

REPORT INFORMATION
  Report Type: 
  Country: None (occurrence: None)
  Receive Date: 20091011
  Receipt Date: 20090929
  Transmission Date: 20100525
  Serious: Yes (Other)
  Sender: FDA-Public Use
  Company Number: PHHY2009CA17803

PATIENT
  Sex: Male

DRUGS (2)
  1. SANDOSTATIN LAR [Suspect]
     Indication: PITUITARY TUMOUR
     Dosage: 30 MG, QMO
     Route: 030
     Dates: start: 20041217
  2. SANDOSTATIN LAR [Suspect]
     Indication: ALBRIGHT'S DISEASE

REACTIONS (6)
  - ASTHENIA [None]
  - BONE PAIN [None]
  - FACIAL PAIN [None]
  - GAIT DISTURBANCE [None]
  - HEADACHE [None]
  - PAIN [None]
